FAERS Safety Report 9187510 (Version 1)
Quarter: 2013Q1

REPORT INFORMATION
  Report Type: Spontaneous
  Country: US (occurrence: US)
  Receive Date: 20130325
  Receipt Date: 20130325
  Transmission Date: 20140127
  Serious: Yes (Other)
  Sender: FDA-Public Use
  Company Number: US-CELGENEUS-163-21880-13032774

PATIENT
  Sex: 0

DRUGS (1)
  1. REVLIMID [Suspect]
     Indication: PLASMA CELL MYELOMA
     Route: 048

REACTIONS (14)
  - Prostate cancer [Unknown]
  - Breast cancer [Unknown]
  - Myelodysplastic syndrome transformation [Unknown]
  - Leukaemia [Unknown]
  - Colorectal cancer [Unknown]
  - Malignant melanoma [Unknown]
  - Lung neoplasm malignant [Unknown]
  - Uterine cancer [Unknown]
  - Bladder cancer [Unknown]
  - Renal cancer [Unknown]
  - Pancreatic carcinoma [Unknown]
  - Testis cancer [Unknown]
  - Myeloproliferative disorder [Unknown]
  - Sarcoma [Unknown]
